FAERS Safety Report 22325998 (Version 1)
Quarter: 2023Q2

REPORT INFORMATION
  Report Type: Spontaneous
  Country: CN (occurrence: CN)
  Receive Date: 20230516
  Receipt Date: 20230516
  Transmission Date: 20230722
  Serious: Yes (Other)
  Sender: FDA-Public Use
  Company Number: CN-PFIZER INC-PV202300085974

PATIENT
  Age: 59 Year
  Sex: Male
  Weight: 65 kg

DRUGS (8)
  1. CEFOPERAZONE SODIUM\SULBACTAM SODIUM [Suspect]
     Active Substance: CEFOPERAZONE SODIUM\SULBACTAM SODIUM
     Indication: Anti-infective therapy
     Dosage: 3 G, 3X/DAY
     Route: 041
     Dates: start: 20230502, end: 20230510
  2. TIGECYCLINE [Suspect]
     Active Substance: TIGECYCLINE
     Indication: Anti-infective therapy
     Dosage: UNK
     Dates: start: 2023, end: 20230504
  3. ALBUMIN HUMAN [Concomitant]
     Active Substance: ALBUMIN HUMAN
     Indication: Hypoproteinaemia
     Dosage: 10 G, 1X/DAY
     Route: 041
     Dates: start: 20230509, end: 20230510
  4. FUROSEMIDE [Concomitant]
     Active Substance: FUROSEMIDE
     Indication: Diuretic therapy
     Dosage: 10 MG, 3X/DAY
     Route: 041
     Dates: start: 20230508, end: 20230510
  5. ULINASTATIN [Concomitant]
     Active Substance: ULINASTATIN
     Indication: Antiinflammatory therapy
     Dosage: 100000 IU, 2X/DAY
     Route: 041
     Dates: start: 20230506, end: 20230510
  6. POLYMYXIN B SULFATE [Concomitant]
     Active Substance: POLYMYXIN B SULFATE
     Indication: Infection
     Dosage: 800000 IU, 2X/DAY
     Route: 041
     Dates: start: 20230504, end: 20230512
  7. VITAMIN B12 [Concomitant]
     Active Substance: CYANOCOBALAMIN
     Indication: Symptomatic treatment
     Dosage: 0.5 MG, 1X/DAY
     Route: 030
     Dates: start: 20230502, end: 20230512
  8. VITAMIN B1 [Concomitant]
     Active Substance: THIAMINE HYDROCHLORIDE
     Indication: Symptomatic treatment
     Dosage: 0.1 G, 1X/DAY
     Route: 030
     Dates: start: 20230502, end: 20230512

REACTIONS (4)
  - Haemorrhage [Recovering/Resolving]
  - Coagulopathy [Recovering/Resolving]
  - Extravasation blood [Recovering/Resolving]
  - Off label use [Unknown]

NARRATIVE: CASE EVENT DATE: 20230101
